FAERS Safety Report 6569420-3 (Version None)
Quarter: 2010Q1

REPORT INFORMATION
  Report Type: 
  Country: None (occurrence: None)
  Receive Date: 20100202
  Receipt Date: 20100202
  Transmission Date: 20100710
  Serious: Yes (Other)
  Sender: FDA-Public Use
  Company Number: None

PATIENT
  Sex: Female
  Weight: 63.5036 kg

DRUGS (1)
  1. ADVAIR DISKUS 100/50 [Suspect]
     Indication: ASTHMA
     Dosage: 100/50 2 X DAILY
     Dates: start: 20030101, end: 20080101

REACTIONS (6)
  - CONFUSIONAL STATE [None]
  - CONVULSION [None]
  - ERYTHEMA [None]
  - FALL [None]
  - SKIN WARM [None]
  - TINNITUS [None]
